FAERS Safety Report 5516153-8 (Version None)
Quarter: 2007Q4

REPORT INFORMATION
  Report Type: 
  Country: None (occurrence: None)
  Receive Date: 20071114
  Receipt Date: 20070103
  Transmission Date: 20080405
  Serious: No
  Sender: FDA-Public Use
  Company Number: A0633109A

PATIENT
  Sex: Female

DRUGS (2)
  1. COMMIT [Suspect]
     Dates: start: 20070101
  2. COMMIT [Suspect]
     Dates: start: 20070101

REACTIONS (3)
  - DIZZINESS [None]
  - INTENTIONAL DRUG MISUSE [None]
  - TREMOR [None]
